FAERS Safety Report 6968018-2 (Version None)
Quarter: 2010Q3

REPORT INFORMATION
  Report Type: 
  Country: None (occurrence: None)
  Receive Date: 20100907
  Receipt Date: 20100825
  Transmission Date: 20110219
  Serious: Yes (Other)
  Sender: FDA-Public Use
  Company Number: A0879307A

PATIENT
  Age: 39 Year
  Sex: Male

DRUGS (2)
  1. AVANDIA [Suspect]
     Dosage: 8MG PER DAY
     Route: 048
     Dates: start: 20030801, end: 20060101
  2. ACTOS [Concomitant]

REACTIONS (4)
  - EYE INJURY [None]
  - MACULAR OEDEMA [None]
  - METAMORPHOPSIA [None]
  - VITREOUS FLOATERS [None]
